FAERS Safety Report 20489617 (Version 1)
Quarter: 2022Q1

REPORT INFORMATION
  Report Type: Spontaneous
  Country: CA (occurrence: CA)
  Receive Date: 20220218
  Receipt Date: 20220218
  Transmission Date: 20220423
  Serious: Yes (Other)
  Sender: FDA-Public Use
  Company Number: CA-PFIZER INC-202200276413

PATIENT
  Age: 63 Year
  Sex: Female

DRUGS (2)
  1. METHOTREXATE SODIUM [Suspect]
     Active Substance: METHOTREXATE SODIUM
     Dosage: 20 MG, WEEKLY
  2. PREDNISONE [Concomitant]
     Active Substance: PREDNISONE
     Dosage: 15 MG, TAPERING DOWN TO 10MG

REACTIONS (1)
  - Psoriatic arthropathy [Unknown]
